FAERS Safety Report 18493126 (Version 1)
Quarter: 2020Q4

REPORT INFORMATION
  Report Type: Report from Study
  Country: BR (occurrence: BR)
  Receive Date: 20201111
  Receipt Date: 20201111
  Transmission Date: 20210114
  Serious: Yes (Disabling, Other)
  Sender: FDA-Public Use
  Company Number: BR-TAKEDA-BR202019043

PATIENT

DRUGS (5)
  1. ADVATE [Suspect]
     Active Substance: ANTIHEMOPHILIC FACTOR, HUMAN RECOMBINANT
     Indication: FACTOR VIII DEFICIENCY
     Dosage: 1000 IU INTERNATIONAL UNIT(S), 3/WEEK
     Route: 042
     Dates: start: 20180703
  2. ADVATE [Suspect]
     Active Substance: ANTIHEMOPHILIC FACTOR, HUMAN RECOMBINANT
     Indication: FACTOR VIII DEFICIENCY
     Dosage: 1000 IU INTERNATIONAL UNIT(S), 3/WEEK
     Route: 042
     Dates: start: 20180703
  3. ADVATE [Suspect]
     Active Substance: ANTIHEMOPHILIC FACTOR, HUMAN RECOMBINANT
     Indication: FACTOR VIII DEFICIENCY
     Dosage: 1000 IU INTERNATIONAL UNIT(S), 3/WEEK
     Route: 042
     Dates: start: 20180703
  4. NORIPURUM [Concomitant]
     Active Substance: IRON POLYMALTOSE
     Indication: ANAEMIA
     Dosage: 1000 INTERNATIONAL UNIT, 3/WEEK
     Route: 042
     Dates: start: 20030902
  5. NORIPURUM [Concomitant]
     Active Substance: IRON POLYMALTOSE
     Dosage: 1000 INTERNATIONAL UNIT
     Route: 042
     Dates: start: 20180703

REACTIONS (5)
  - Internal haemorrhage [Unknown]
  - Gait inability [Unknown]
  - Weight increased [Unknown]
  - Vaginal haemorrhage [Unknown]
  - Asthenia [Unknown]
